FAERS Safety Report 17447241 (Version 1)
Quarter: 2020Q1

REPORT INFORMATION
  Report Type: Spontaneous
  Country: NL (occurrence: NL)
  Receive Date: 20200221
  Receipt Date: 20200221
  Transmission Date: 20200409
  Serious: Yes (Hospitalization)
  Sender: FDA-Public Use
  Company Number: NL-ALLERGAN-2007971US

PATIENT
  Sex: Female

DRUGS (2)
  1. PREDNISOLONE UNK [Suspect]
     Active Substance: PREDNISOLONE
     Indication: PRODUCT USED FOR UNKNOWN INDICATION
     Dosage: UNK UNK, Q3MONTHS
     Route: 065
  2. PREDNISONE. [Suspect]
     Active Substance: PREDNISONE
     Indication: PRODUCT USED FOR UNKNOWN INDICATION
     Dosage: UNK
     Route: 065

REACTIONS (10)
  - Respiratory syncytial virus infection [Unknown]
  - Rash macular [Unknown]
  - Muscular weakness [Unknown]
  - Ocular hyperaemia [Unknown]
  - Gait disturbance [Unknown]
  - Pseudofolliculitis [Unknown]
  - Movement disorder [Unknown]
  - Head discomfort [Unknown]
  - Erythema [Unknown]
  - Mood swings [Unknown]
